FAERS Safety Report 7562097-X (Version None)
Quarter: 2011Q2

REPORT INFORMATION
  Report Type: 
  Country: None (occurrence: None)
  Receive Date: 20110622
  Receipt Date: 20110615
  Transmission Date: 20111010
  Serious: Yes (Other)
  Sender: FDA-Public Use
  Company Number: FR-BIOGENIDEC-2011BI022435

PATIENT
  Age: 28 Year
  Sex: Female

DRUGS (3)
  1. TYSABRI [Suspect]
     Indication: MULTIPLE SCLEROSIS
     Route: 042
     Dates: start: 20080910, end: 20090527
  2. TYSABRI [Suspect]
     Route: 042
     Dates: start: 20090101, end: 20100101
  3. TYSABRI [Suspect]
     Route: 042

REACTIONS (2)
  - REBOUND EFFECT [None]
  - MULTIPLE SCLEROSIS RELAPSE [None]
